FAERS Safety Report 8762229 (Version 1)
Quarter: 2012Q4

REPORT INFORMATION
  Report Type: 
  Country: US (occurrence: US)
  Receive Date: 20120830
  Receipt Date: 20120830
  Transmission Date: 20130627
  Serious: Yes (Other)
  Sender: FDA-Public Use
  Company Number: US-PFIZER INC-2012211433

PATIENT
  Sex: Male
  Weight: 104 kg

DRUGS (5)
  1. ATORVASTATIN CALCIUM [Suspect]
     Indication: BLOOD CHOLESTEROL INCREASED
     Dosage: 20 mg, UNK
  2. LIPITOR [Suspect]
     Indication: BLOOD CHOLESTEROL INCREASED
     Dosage: 20 mg, daily
  3. ASPIRIN [Concomitant]
     Dosage: 81 mg, daily
  4. ADVAIR [Concomitant]
     Indication: ASTHMA
     Dosage: [fluticasone proprionate 250]/ [salmeterol xinafoate 50] 1 puff, 2x/day
     Route: 055
  5. PREVACID [Concomitant]
     Indication: GASTROOESOPHAGEAL REFLUX DISEASE
     Dosage: 15 mg, daily

REACTIONS (2)
  - Hypertension [Unknown]
  - Drug dispensing error [Unknown]
